FAERS Safety Report 15259112 (Version 3)
Quarter: 2018Q3

REPORT INFORMATION
  Report Type: Report from Study
  Country: US (occurrence: US)
  Receive Date: 20180809
  Receipt Date: 20180920
  Transmission Date: 20181010
  Serious: Yes (Hospitalization, Other)
  Sender: FDA-Public Use
  Company Number: US-BAYER-2018-142988

PATIENT
  Age: 80 Year
  Sex: Male

DRUGS (2)
  1. STIVARGA [Suspect]
     Active Substance: REGORAFENIB
     Indication: HEPATOCELLULAR CARCINOMA
     Dosage: DAILY DOSE 160 MG
     Route: 048
     Dates: start: 20180720, end: 2018
  2. STIVARGA [Suspect]
     Active Substance: REGORAFENIB
     Indication: HEPATOCELLULAR CARCINOMA
     Dosage: 40 MG, DAILY
     Route: 048
     Dates: start: 2018

REACTIONS (5)
  - Malaise [None]
  - Feeling abnormal [None]
  - Disorientation [None]
  - Spinal operation [None]
  - Confusional state [None]

NARRATIVE: CASE EVENT DATE: 20180820
